FAERS Safety Report 21446674 (Version 1)
Quarter: 2022Q4

REPORT INFORMATION
  Report Type: Spontaneous
  Country: CN (occurrence: None)
  Receive Date: 20221012
  Receipt Date: 20221012
  Transmission Date: 20230112
  Serious: Yes (Death, Life-Threatening, Hospitalization, Other)
  Sender: FDA-Public Use
  Company Number: CN-HQ-20220035

PATIENT
  Age: 71 Year
  Sex: Female
  Weight: 110 kg

DRUGS (7)
  1. DAPAGLIFLOZIN [Interacting]
     Active Substance: DAPAGLIFLOZIN
     Indication: Type 2 diabetes mellitus
  2. LINEZOLID [Interacting]
     Active Substance: LINEZOLID
     Indication: Pneumonia staphylococcal
     Route: 042
  3. POTASSIUM [Concomitant]
     Active Substance: POTASSIUM
     Dosage: ()
     Route: 048
  4. INSULIN ASPART [Concomitant]
     Active Substance: INSULIN ASPART
     Indication: Type 2 diabetes mellitus
  5. BUDESONIDE [Concomitant]
     Active Substance: BUDESONIDE
     Indication: Dyspnoea
     Route: 055
  6. INSULIN DEGLUDEC [Concomitant]
     Active Substance: INSULIN DEGLUDEC
     Indication: Type 2 diabetes mellitus
  7. dihydroxypropyl theophylline [Concomitant]
     Indication: Pneumonia
     Route: 042

REACTIONS (2)
  - Drug interaction [Fatal]
  - Myelosuppression [Fatal]
